FAERS Safety Report 7643824-X (Version None)
Quarter: 2011Q3

REPORT INFORMATION
  Report Type: 
  Country: None (occurrence: None)
  Receive Date: 20110729
  Receipt Date: 20081104
  Transmission Date: 20111222
  Serious: Yes (Hospitalization)
  Sender: FDA-Public Use
  Company Number: US-GLAXOSMITHKLINE-A0745696A

PATIENT
  Age: 24 Year
  Sex: Male

DRUGS (8)
  1. IMITREX [Suspect]
     Indication: MIGRAINE
     Dosage: 100MG AS REQUIRED
     Route: 048
  2. IMITREX [Suspect]
     Route: 058
  3. SUMATRIPTAN SUCCINATE [Suspect]
  4. TRAZODONE HCL [Concomitant]
  5. NEXIUM [Concomitant]
  6. CYMBALTA [Concomitant]
  7. CLORAZEPATE DIPOTASSIUM [Concomitant]
  8. RESTORIL [Concomitant]

REACTIONS (4)
  - PRODUCT QUALITY ISSUE [None]
  - DIZZINESS [None]
  - DRUG INEFFECTIVE [None]
  - SENSORY DISTURBANCE [None]
